FAERS Safety Report 9237108 (Version 3)
Quarter: 2013Q2

REPORT INFORMATION
  Report Type: Spontaneous
  Country: JP (occurrence: JP)
  Receive Date: 20130417
  Receipt Date: 20130530
  Transmission Date: 20140414
  Serious: Yes (Other)
  Sender: FDA-Public Use
  Company Number: JP-VERTEX PHARMACEUTICALS INC.-2013-004921

PATIENT
  Age: 64 Year
  Sex: Female

DRUGS (6)
  1. TELAVIC [Suspect]
     Indication: CHRONIC HEPATITIS C
     Dosage: 1500 MG, QD
     Route: 048
     Dates: start: 20130123, end: 20130325
  2. PEGINTRON [Suspect]
     Indication: CHRONIC HEPATITIS C
     Dosage: 1.5 ?G/KG, QW
     Route: 058
     Dates: start: 20130123, end: 20130312
  3. PEGINTRON [Suspect]
     Dosage: 1.0 ?G/KG, QW
     Route: 058
     Dates: start: 20130319, end: 20130319
  4. RIBAVIRIN [Suspect]
     Indication: CHRONIC HEPATITIS C
     Dosage: 400 MG, QD
     Route: 048
     Dates: start: 20130123, end: 20130304
  5. RIBAVIRIN [Suspect]
     Dosage: 200 MG, QD
     Route: 048
     Dates: start: 20130305, end: 20130325
  6. JANUVIA [Concomitant]
     Dosage: 25 MG, QD
     Route: 048

REACTIONS (2)
  - Retinal haemorrhage [Recovered/Resolved]
  - Decreased appetite [Recovered/Resolved]
